FAERS Safety Report 10384304 (Version 2)
Quarter: 2014Q3

REPORT INFORMATION
  Report Type: Spontaneous
  Country: US (occurrence: US)
  Receive Date: 20140814
  Receipt Date: 20140923
  Transmission Date: 20150326
  Serious: No
  Sender: FDA-Public Use
  Company Number: US-PFIZER INC-2014224082

PATIENT
  Age: 68 Year
  Sex: Male

DRUGS (1)
  1. INLYTA [Suspect]
     Active Substance: AXITINIB
     Indication: URINARY TRACT NEOPLASM
     Dosage: 5 MG, 2X/DAY OR EVERY 12 HOURS
     Dates: start: 20140509, end: 201409

REACTIONS (6)
  - Skin exfoliation [Unknown]
  - Disease progression [Unknown]
  - Pain [Unknown]
  - Arthralgia [Unknown]
  - Urinary tract neoplasm [Unknown]
  - Dry skin [Unknown]
